FAERS Safety Report 5296631-X (Version None)
Quarter: 2007Q2

REPORT INFORMATION
  Report Type: 
  Country: None (occurrence: None)
  Receive Date: 20070413
  Receipt Date: 20070402
  Transmission Date: 20071010
  Serious: Yes (Death, Other)
  Sender: FDA-Public Use
  Company Number: GB-PFIZER INC-2007004321

PATIENT
  Age: 69 Year
  Sex: Male

DRUGS (2)
  1. IDARUBICIN HCL [Suspect]
     Indication: MULTIPLE MYELOMA
     Route: 048
     Dates: start: 20061220, end: 20061224
  2. DEXAMETHASONE [Concomitant]
     Route: 048
     Dates: start: 20061220, end: 20061224

REACTIONS (5)
  - ACCIDENTAL OVERDOSE [None]
  - BONE MARROW FAILURE [None]
  - CARDIAC DISORDER [None]
  - DEATH [None]
  - MUCOSAL INFLAMMATION [None]
